FAERS Safety Report 7088592-8 (Version None)
Quarter: 2010Q4

REPORT INFORMATION
  Report Type: 
  Country: None (occurrence: None)
  Receive Date: 20101029
  Receipt Date: 20101013
  Transmission Date: 20110411
  Serious: Yes (Other)
  Sender: FDA-Public Use
  Company Number: ACO_02180_2010

PATIENT
  Sex: Male
  Weight: 77.1115 kg

DRUGS (2)
  1. AMPYRA [Suspect]
     Indication: MULTIPLE SCLEROSIS
     Dosage: (10 MG BID ORAL)
     Route: 048
     Dates: start: 20100515, end: 20100602
  2. AVONEX [Concomitant]

REACTIONS (4)
  - CONDITION AGGRAVATED [None]
  - DISORIENTATION [None]
  - DYSURIA [None]
  - GAIT DISTURBANCE [None]
